FAERS Safety Report 6359678-8 (Version None)
Quarter: 2009Q3

REPORT INFORMATION
  Report Type: 
  Country: None (occurrence: None)
  Receive Date: 20090917
  Receipt Date: 20090909
  Transmission Date: 20100115
  Serious: Yes (Other)
  Sender: FDA-Public Use
  Company Number: JP-PFIZER INC-2009263415

PATIENT
  Age: 61 Year

DRUGS (4)
  1. XALATAN [Suspect]
     Indication: GLAUCOMA
     Dosage: 1 GTT, 1X/DAY
     Route: 047
     Dates: start: 20090722, end: 20090101
  2. ALCOHOL [Interacting]
  3. BLOPRESS [Concomitant]
     Route: 048
  4. TAMSULOSIN HYDROCHLORIDE [Concomitant]
     Route: 048

REACTIONS (2)
  - DRUG INTERACTION [None]
  - INTRAOCULAR PRESSURE INCREASED [None]
